FAERS Safety Report 8228914-5 (Version None)
Quarter: 2012Q1

REPORT INFORMATION
  Report Type: 
  Country: None (occurrence: None)
  Receive Date: 20120322
  Receipt Date: 20120314
  Transmission Date: 20120608
  Serious: Yes (Hospitalization, Other)
  Sender: FDA-Public Use
  Company Number: US-BAYER-2011-050897

PATIENT
  Age: 19 Year
  Sex: Female
  Weight: 88 kg

DRUGS (2)
  1. YAZ [Suspect]
     Dosage: UNK
     Dates: start: 20070101, end: 20100101
  2. ZANTAC [Concomitant]
     Dosage: UNK
     Dates: start: 20090624

REACTIONS (14)
  - GALLBLADDER DISORDER [None]
  - DYSPEPSIA [None]
  - FLATULENCE [None]
  - CONSTIPATION [None]
  - DIARRHOEA [None]
  - BILIARY DYSKINESIA [None]
  - ABDOMINAL PAIN UPPER [None]
  - PAIN [None]
  - ABDOMINAL DISTENSION [None]
  - SCAR [None]
  - CHOLECYSTITIS CHRONIC [None]
  - DEPRESSION [None]
  - EMOTIONAL DISTRESS [None]
  - ANXIETY [None]
